FAERS Safety Report 7528388-3 (Version None)
Quarter: 2011Q2

REPORT INFORMATION
  Report Type: 
  Country: None (occurrence: None)
  Receive Date: 20110607
  Receipt Date: 20100428
  Transmission Date: 20111010
  Serious: No
  Sender: FDA-Public Use
  Company Number: US-ASTRAZENECA-2010SE15372

PATIENT
  Age: 55 Year
  Sex: Female

DRUGS (5)
  1. PRILOSEC OTC [Suspect]
     Indication: DYSPEPSIA
     Route: 048
     Dates: start: 20100329, end: 20100405
  2. VERAPAMIL [Concomitant]
     Indication: HYPERTENSION
  3. DIGOXIN [Concomitant]
     Indication: HYPERTENSION
  4. ETODOLAC [Concomitant]
  5. TRIAMTERENE [Concomitant]
     Indication: HYPERTENSION

REACTIONS (6)
  - NAUSEA [None]
  - OEDEMA MOUTH [None]
  - LIP SWELLING [None]
  - LABELLED DRUG-DRUG INTERACTION MEDICATION ERROR [None]
  - HYPERSENSITIVITY [None]
  - URTICARIA [None]
